FAERS Safety Report 19004663 (Version 17)
Quarter: 2024Q4

REPORT INFORMATION
  Report Type: Report from Study
  Country: CA (occurrence: CA)
  Receive Date: 20210312
  Receipt Date: 20241219
  Transmission Date: 20250115
  Serious: Yes (Other)
  Sender: TAKEDA
  Company Number: CA-TAKEDA-CA202013658

PATIENT
  Age: 52 Year
  Sex: Female

DRUGS (25)
  1. ICATIBANT [Suspect]
     Active Substance: ICATIBANT ACETATE
     Indication: Hereditary angioedema
     Dosage: UNK
  2. ICATIBANT [Suspect]
     Active Substance: ICATIBANT ACETATE
     Indication: Hereditary angioedema with normal C1 esterase inhibitor
     Dosage: UNK
  3. ICATIBANT [Suspect]
     Active Substance: ICATIBANT ACETATE
     Dosage: UNK
  4. ICATIBANT [Suspect]
     Active Substance: ICATIBANT ACETATE
     Dosage: UNK
  5. ICATIBANT [Suspect]
     Active Substance: ICATIBANT ACETATE
     Dosage: UNK
  6. PRAMIPEXOLE [Concomitant]
     Active Substance: PRAMIPEXOLE\PRAMIPEXOLE DIHYDROCHLORIDE
     Dosage: 0.25 MILLIGRAM, QD
     Dates: start: 20170530, end: 20170821
  7. ACTEMRA [Concomitant]
     Active Substance: TOCILIZUMAB
     Dosage: UNK UNK, MONTHLY
     Dates: start: 20160801
  8. ACTEMRA [Concomitant]
     Active Substance: TOCILIZUMAB
     Dosage: UNK UNK, Q4WEEKS
  9. ACTEMRA [Concomitant]
     Active Substance: TOCILIZUMAB
     Dosage: UNK UNK, Q4WEEKS
  10. LORAZEPAM [Concomitant]
     Active Substance: LORAZEPAM
     Dosage: UNK
  11. SIMPONI [Concomitant]
     Active Substance: GOLIMUMAB
     Dosage: UNK
  12. AMITRIPTYLINE [Concomitant]
     Active Substance: AMITRIPTYLINE
     Dosage: UNK
     Dates: start: 20150701, end: 20170530
  13. ALBUTEROL SULFATE [Concomitant]
     Active Substance: ALBUTEROL SULFATE
     Dosage: UNK
  14. SYMBICORT [Concomitant]
     Active Substance: BUDESONIDE\FORMOTEROL FUMARATE DIHYDRATE
     Dosage: UNK
  15. DEXILANT [Concomitant]
     Active Substance: DEXLANSOPRAZOLE
     Dosage: UNK
  16. ACTONEL [Concomitant]
     Active Substance: RISEDRONATE SODIUM
     Dosage: UNK
  17. PLAQUENIL [Concomitant]
     Active Substance: HYDROXYCHLOROQUINE SULFATE
     Dosage: UNK
  18. HYDROMORPHONE [Concomitant]
     Active Substance: HYDROMORPHONE
     Dosage: UNK
  19. TYLENOL [Concomitant]
     Active Substance: ACETAMINOPHEN
     Dosage: UNK
  20. CIPRALEX [Concomitant]
     Active Substance: ESCITALOPRAM OXALATE
     Dosage: UNK
  21. BERINERT [Concomitant]
     Active Substance: HUMAN C1-ESTERASE INHIBITOR
     Indication: Hereditary angioedema
     Dosage: 3500 MILLIGRAM, 3/WEEK
     Dates: start: 20161013
  22. BERINERT [Concomitant]
     Active Substance: HUMAN C1-ESTERASE INHIBITOR
     Dosage: UNK
  23. HAEGARDA [Concomitant]
     Active Substance: HUMAN C1-ESTERASE INHIBITOR
     Dosage: UNK UNK, 2/WEEK
  24. PREDNISONE [Concomitant]
     Active Substance: PREDNISONE
     Dosage: UNK
  25. VITAMIN D NOS [Concomitant]
     Active Substance: CHOLECALCIFEROL\ERGOCALCIFEROL
     Dosage: UNK

REACTIONS (11)
  - Deafness unilateral [Recovered/Resolved]
  - Epistaxis [Unknown]
  - Contusion [Unknown]
  - Fall [Unknown]
  - Dehydration [Unknown]
  - Limb injury [Recovered/Resolved]
  - Arthropod bite [Unknown]
  - Post procedural discomfort [Recovering/Resolving]
  - Cough [Recovering/Resolving]
  - Drug ineffective [Not Recovered/Not Resolved]
  - Urinary tract infection [Not Recovered/Not Resolved]

NARRATIVE: CASE EVENT DATE: 20200528
